FAERS Safety Report 4391234-3 (Version None)
Quarter: 2004Q2

REPORT INFORMATION
  Report Type: 
  Country: None (occurrence: None)
  Receive Date: 20040621
  Receipt Date: 20040128
  Transmission Date: 20050107
  Serious: Yes (Hospitalization, Other)
  Sender: FDA-Public Use
  Company Number: USA-2002-0002713

PATIENT
  Age: 38 Year
  Sex: Female
  Weight: 73 kg

DRUGS (17)
  1. OXYCONTIN [Suspect]
     Indication: PAIN
     Dosage: 80 MG, TID, ORAL
     Route: 048
  2. RIFAMPIN [Concomitant]
  3. ISONIAZID [Concomitant]
  4. PROZAC [Concomitant]
  5. VALIUM [Concomitant]
  6. ULTRAM [Concomitant]
  7. SENOKOT [Concomitant]
  8. SOMA [Concomitant]
  9. DITROPAN [Concomitant]
  10. LORCET-HD [Concomitant]
  11. PREMARIN [Concomitant]
  12. PEPCID [Concomitant]
  13. KERLONE [Concomitant]
  14. IMIPRAMINE [Concomitant]
  15. PAXIL [Concomitant]
  16. ATIVAN [Concomitant]
  17. DOXEPIN HCL [Concomitant]

REACTIONS (40)
  - ABDOMINAL PAIN [None]
  - ASTHENIA [None]
  - CONSTIPATION [None]
  - COUGH [None]
  - DIARRHOEA [None]
  - DIFFICULTY IN WALKING [None]
  - DIZZINESS [None]
  - DRUG DEPENDENCE [None]
  - DRUG INEFFECTIVE [None]
  - DRUG TOLERANCE INCREASED [None]
  - DRUG WITHDRAWAL SYNDROME [None]
  - DYSKINESIA [None]
  - DYSPEPSIA [None]
  - DYSURIA [None]
  - EMOTIONAL DISTRESS [None]
  - FORMICATION [None]
  - GASTROOESOPHAGEAL REFLUX DISEASE [None]
  - HAEMATOCHEZIA [None]
  - HOARSENESS [None]
  - HOT FLUSH [None]
  - HYPOAESTHESIA [None]
  - MARITAL PROBLEM [None]
  - MIGRAINE [None]
  - NAUSEA [None]
  - NERVOUSNESS [None]
  - NIGHT SWEATS [None]
  - NOCTURIA [None]
  - PAIN [None]
  - PALPITATIONS [None]
  - PARAESTHESIA [None]
  - REGURGITATION OF FOOD [None]
  - SLUGGISHNESS [None]
  - STRESS SYMPTOMS [None]
  - SWELLING [None]
  - TACHYCARDIA [None]
  - TOOTH REPAIR [None]
  - UPPER RESPIRATORY TRACT INFECTION [None]
  - VISION BLURRED [None]
  - VOMITING [None]
  - WEIGHT INCREASED [None]
